FAERS Safety Report 24554752 (Version 1)
Quarter: 2024Q4

REPORT INFORMATION
  Report Type: Spontaneous
  Country: CA (occurrence: CA)
  Receive Date: 20241028
  Receipt Date: 20241028
  Transmission Date: 20250115
  Serious: Yes (Death)
  Sender: CHEPLAPHARM
  Company Number: CA-ELI_LILLY_AND_COMPANY-CA202410011968

PATIENT
  Age: 48 Year
  Sex: Male

DRUGS (8)
  1. OLANZAPINE [Suspect]
     Active Substance: OLANZAPINE
     Indication: Product used for unknown indication
     Dosage: UNK, UNKNOWN
  2. AMPHETAMINE ADIPATE [Suspect]
     Active Substance: AMPHETAMINE ADIPATE
     Indication: Product used for unknown indication
     Dosage: UNK, UNKNOWN
  3. CAFFEINE [Suspect]
     Active Substance: CAFFEINE
     Indication: Product used for unknown indication
     Dosage: UNK, UNKNOWN
  4. ETIZOLAM [Suspect]
     Active Substance: ETIZOLAM
     Indication: Product used for unknown indication
     Dosage: UNK, UNKNOWN
  5. FENTANYL [Suspect]
     Active Substance: FENTANYL
     Indication: Product used for unknown indication
     Dosage: UNK, UNKNOWN
  6. METHAMPHETAMINE SACCHARATE [Suspect]
     Active Substance: METHAMPHETAMINE SACCHARATE
     Indication: Product used for unknown indication
     Dosage: UNK, UNKNOWN
  7. NALOXONE [Suspect]
     Active Substance: NALOXONE
     Indication: Product used for unknown indication
     Dosage: UNK, UNKNOWN
  8. DELTA(9)-TETRAHYDROCANNABINOLIC ACID [Suspect]
     Active Substance: DELTA(9)-TETRAHYDROCANNABINOLIC ACID
     Indication: Product used for unknown indication
     Dosage: UNK, UNKNOWN

REACTIONS (1)
  - Toxicity to various agents [Fatal]
